FAERS Safety Report 10143053 (Version 1)
Quarter: 2014Q2

REPORT INFORMATION
  Report Type: Spontaneous
  Country: GB (occurrence: None)
  Receive Date: 20140428
  Receipt Date: 20140428
  Transmission Date: 20141212
  Serious: Yes (Other)
  Sender: FDA-Public Use
  Company Number: AUR-APL-2014-04841

PATIENT
  Age: 57 Year
  Sex: Male
  Weight: 105.2 kg

DRUGS (4)
  1. SIMVASTATIN (SIMVASTATIN) [Suspect]
     Indication: BLOOD CHOLESTEROL INCREASED
     Route: 048
     Dates: start: 20130902, end: 20140326
  2. FELODIPINE (FELODIPINE) [Concomitant]
  3. RAMIPRIL (RAMIPRIL) [Concomitant]
  4. TAMSULOSIN HYDROCHLORIDE (TAMSULOSIN HYDROCHLORIDE) [Concomitant]

REACTIONS (2)
  - Tendonitis [None]
  - Arthralgia [None]
